FAERS Safety Report 20823486 (Version 1)
Quarter: 2022Q2

REPORT INFORMATION
  Report Type: Spontaneous
  Country: FR (occurrence: FR)
  Receive Date: 20220513
  Receipt Date: 20220513
  Transmission Date: 20220721
  Serious: Yes (Hospitalization, Other)
  Sender: FDA-Public Use
  Company Number: FR-SUN PHARMACEUTICAL INDUSTRIES LTD-2022RR-336722

PATIENT
  Age: 26 Year
  Sex: Male

DRUGS (4)
  1. ACETAMINOPHEN [Suspect]
     Active Substance: ACETAMINOPHEN
     Indication: Self-medication
     Dosage: UNK
     Route: 048
     Dates: start: 20220203, end: 20220203
  2. PREGABALIN [Suspect]
     Active Substance: PREGABALIN
     Indication: Self-medication
     Dosage: 10CP (DOSE UNKNOWN) BETWEEN 5 A.M. AND 7 P.M.
     Route: 048
     Dates: start: 20220203, end: 20220203
  3. TRAMADOL [Suspect]
     Active Substance: TRAMADOL
     Indication: Self-medication
     Dosage: UNK
     Route: 048
     Dates: start: 20220203, end: 20220203
  4. CANNABIS SATIVA SUBSP. INDICA TOP [Suspect]
     Active Substance: CANNABIS SATIVA SUBSP. INDICA TOP
     Indication: Product used for unknown indication
     Dosage: 8 JOINTS/DAY
     Route: 055

REACTIONS (3)
  - Intentional product misuse [Recovered/Resolved]
  - Drug dependence [Not Recovered/Not Resolved]
  - Abdominal pain [Recovered/Resolved]

NARRATIVE: CASE EVENT DATE: 20220203
